FAERS Safety Report 5345004-X (Version None)
Quarter: 2007Q2

REPORT INFORMATION
  Report Type: 
  Country: None (occurrence: None)
  Receive Date: 20070416
  Receipt Date: 20061225
  Transmission Date: 20071010
  Serious: No
  Sender: FDA-Public Use
  Company Number: 2006SP004487

PATIENT
  Age: 44 Year
  Sex: Female
  Weight: 45.3597 kg

DRUGS (4)
  1. LUNESTA [Suspect]
     Indication: INSOMNIA
     Dosage: 3 MG;PRN;ORAL
     Route: 048
     Dates: start: 20061201, end: 20061220
  2. PRAMIPEXOLE DIHYDROCHLORIDE [Concomitant]
  3. LEXAPRO [Concomitant]
  4. SPIRONOLACTONE [Concomitant]

REACTIONS (4)
  - AMNESIA [None]
  - EMOTIONAL DISORDER [None]
  - FEELING ABNORMAL [None]
  - SOMNOLENCE [None]
